FAERS Safety Report 13433056 (Version 2)
Quarter: 2019Q4

REPORT INFORMATION
  Report Type: Spontaneous
  Country: US (occurrence: US)
  Receive Date: 20170412
  Receipt Date: 20191115
  Transmission Date: 20200122
  Serious: Yes (Other)
  Sender: FDA-Public Use
  Company Number: US-PFIZER INC-2017160931

PATIENT
  Age: 60 Year
  Sex: Male

DRUGS (14)
  1. VIAGRA [Suspect]
     Active Substance: SILDENAFIL CITRATE
     Dosage: UNK, (FOUR SAMPLES)
     Route: 048
     Dates: start: 20130204
  2. CIALIS [Suspect]
     Active Substance: TADALAFIL
     Indication: ERECTILE DYSFUNCTION
     Dosage: 5 MG TROUCHE, AS NEEDED
     Dates: start: 20150602, end: 201705
  3. VIAGRA [Suspect]
     Active Substance: SILDENAFIL CITRATE
     Dosage: 100 MG TABLETS, AS NEEDED
     Route: 048
     Dates: start: 2004, end: 2011
  4. CIALIS [Suspect]
     Active Substance: TADALAFIL
     Indication: ERECTILE DYSFUNCTION
     Dosage: 5 MG, AS NEEDED
     Route: 048
     Dates: start: 20150506, end: 20170602
  5. ALFUZOSIN [Concomitant]
     Active Substance: ALFUZOSIN
     Indication: POLLAKIURIA
     Dosage: 10 MG, 1X/DAY
     Dates: start: 2008
  6. VIAGRA [Suspect]
     Active Substance: SILDENAFIL CITRATE
     Dosage: 100 MG, AS NEEDED (SAMPLES)
     Route: 048
     Dates: start: 1999, end: 1999
  7. VIAGRA [Suspect]
     Active Substance: SILDENAFIL CITRATE
     Dosage: UNK, (FOUR SAMPLES)
     Route: 048
     Dates: start: 20140102
  8. VIAGRA [Suspect]
     Active Substance: SILDENAFIL CITRATE
     Indication: ERECTILE DYSFUNCTION
     Dosage: 100 MG TROUCHE, AS NEEDED
     Route: 048
     Dates: start: 20140103, end: 201504
  9. LIPITOR [Concomitant]
     Active Substance: ATORVASTATIN CALCIUM
     Indication: BLOOD CHOLESTEROL INCREASED
     Dosage: UNK
  10. PROCTOCREAM HC [Concomitant]
     Active Substance: HYDROCORTISONE
     Indication: HAEMORRHOIDS
     Dosage: UNK
  11. VIAGRA [Suspect]
     Active Substance: SILDENAFIL CITRATE
     Indication: ERECTILE DYSFUNCTION
     Dosage: UNK
     Route: 048
     Dates: start: 1999, end: 201504
  12. VIAGRA [Suspect]
     Active Substance: SILDENAFIL CITRATE
     Dosage: 100 MG, AS NEEDED
     Route: 048
     Dates: start: 20110719, end: 201306
  13. XARELTO [Concomitant]
     Active Substance: RIVAROXABAN
     Indication: PAIN IN EXTREMITY
     Dosage: UNK
  14. XARELTO [Concomitant]
     Active Substance: RIVAROXABAN
     Indication: OEDEMA PERIPHERAL

REACTIONS (4)
  - Emotional distress [Unknown]
  - Anxiety [Unknown]
  - Malignant melanoma in situ [Unknown]
  - Superficial spreading melanoma stage unspecified [Unknown]

NARRATIVE: CASE EVENT DATE: 20070326
